FAERS Safety Report 5625455-6 (Version None)
Quarter: 2008Q1

REPORT INFORMATION
  Report Type: 
  Country: None (occurrence: None)
  Receive Date: 20080211
  Receipt Date: 20080130
  Transmission Date: 20080703
  Serious: No
  Sender: FDA-Public Use
  Company Number: 20073723

PATIENT
  Sex: Female

DRUGS (1)
  1. LIORESAL [Suspect]
     Indication: MUSCLE SPASTICITY
     Dosage: MCG,DAILY,INTRATHECAL
     Route: 037

REACTIONS (8)
  - CATHETER RELATED COMPLICATION [None]
  - DEVICE FAILURE [None]
  - DISEASE RECURRENCE [None]
  - DRUG WITHDRAWAL SYNDROME [None]
  - GAIT DISTURBANCE [None]
  - MUSCLE SPASMS [None]
  - MUSCLE SPASTICITY [None]
  - PRURITUS [None]
